FAERS Safety Report 4264926-4 (Version None)
Quarter: 2004Q1

REPORT INFORMATION
  Report Type: 
  Country: None (occurrence: None)
  Receive Date: 20040105
  Receipt Date: 20031225
  Transmission Date: 20041129
  Serious: Yes (Death)
  Sender: FDA-Public Use
  Company Number: 200311604JP

PATIENT
  Age: 55 Year
  Sex: Female
  Weight: 42.8 kg

DRUGS (7)
  1. LANTUS [Suspect]
     Indication: DIABETES MELLITUS INSULIN-DEPENDENT
     Dosage: 6 U HS SC
     Route: 058
     Dates: start: 20031216, end: 20031221
  2. TICLOPIDINE HCL [Concomitant]
  3. MOSAPRIDE CITRATE (GASMOTIN) [Concomitant]
  4. DOMPERIDONE (NAUZELIN) [Concomitant]
  5. BETAHISTINE HYDROCHLORIDE (MERISLON) [Concomitant]
  6. FAMOTIDINE [Concomitant]
  7. HUMALOG [Concomitant]

REACTIONS (7)
  - BLOOD PRESSURE DECREASED [None]
  - BRADYCARDIA [None]
  - CARDIAC FAILURE [None]
  - DECREASED APPETITE [None]
  - DRUG EFFECT DECREASED [None]
  - HYPOGLYCAEMIA [None]
  - RESPIRATORY RATE DECREASED [None]
